FAERS Safety Report 8400888-3 (Version None)
Quarter: 2012Q2

REPORT INFORMATION
  Report Type: 
  Country: None (occurrence: None)
  Receive Date: 20120601
  Receipt Date: 20120525
  Transmission Date: 20120825
  Serious: Yes (Death, Other)
  Sender: FDA-Public Use
  Company Number: US-AMGEN-USASP2011048687

PATIENT
  Age: 68 Year
  Sex: Male
  Weight: 88.435 kg

DRUGS (7)
  1. CORTICOSTEROIDS [Concomitant]
     Indication: IDIOPATHIC THROMBOCYTOPENIC PURPURA
  2. DAPSONE [Concomitant]
     Indication: LIVER TRANSPLANT
     Dosage: 100 MG, 3 TIMES/WK
  3. PROGRAF [Concomitant]
     Indication: LIVER TRANSPLANT
     Dosage: 1.5 MG, BID
  4. DANAZOL [Concomitant]
     Indication: IDIOPATHIC THROMBOCYTOPENIC PURPURA
  5. ASPIRIN [Concomitant]
     Dosage: 81 MG, QD
  6. NPLATE [Suspect]
     Indication: IDIOPATHIC THROMBOCYTOPENIC PURPURA
     Dosage: 3 MUG/KG, Q2WK
     Route: 058
     Dates: start: 20100803, end: 20110411
  7. LOPRESSOR [Concomitant]
     Dosage: 25 MG, BID
     Route: 048

REACTIONS (3)
  - MYOCARDIAL INFARCTION [None]
  - CEREBROVASCULAR ACCIDENT [None]
  - BIOPSY BONE MARROW ABNORMAL [None]
